FAERS Safety Report 8485577-1 (Version None)
Quarter: 2012Q2

REPORT INFORMATION
  Report Type: 
  Country: None (occurrence: None)
  Receive Date: 20120627
  Receipt Date: 20120627
  Transmission Date: 20120825
  Serious: Yes (Disabling)
  Sender: FDA-Public Use
  Company Number: None

PATIENT
  Age: 52 Year
  Sex: Male
  Weight: 86.1834 kg

DRUGS (1)
  1. CIPROFLOXACIN HCL [Suspect]
     Dates: start: 20120315, end: 20120320

REACTIONS (7)
  - WEIGHT DECREASED [None]
  - STRESS [None]
  - ASTHENIA [None]
  - ARTHRALGIA [None]
  - FEAR [None]
  - GAIT DISTURBANCE [None]
  - PAIN IN EXTREMITY [None]
